FAERS Safety Report 21811354 (Version 1)
Quarter: 2023Q1

REPORT INFORMATION
  Report Type: Spontaneous
  Country: GB (occurrence: GB)
  Receive Date: 20230103
  Receipt Date: 20230103
  Transmission Date: 20230417
  Serious: Yes (Other)
  Sender: FDA-Public Use
  Company Number: GB-MHRA-MED-202212282354453070-FSGLJ

PATIENT
  Sex: Male

DRUGS (1)
  1. SERTRALINE [Suspect]
     Active Substance: SERTRALINE HYDROCHLORIDE
     Indication: Product used for unknown indication
     Dosage: UNK
     Route: 065

REACTIONS (5)
  - Delusion [Recovered/Resolved]
  - Impulsive behaviour [Recovered/Resolved]
  - Emotional disorder [Recovered/Resolved]
  - Loss of employment [Unknown]
  - Depersonalisation/derealisation disorder [Recovered/Resolved]
